FAERS Safety Report 4850928-3 (Version None)
Quarter: 2005Q4

REPORT INFORMATION
  Report Type: 
  Country: None (occurrence: None)
  Receive Date: 20051212
  Receipt Date: 20051027
  Transmission Date: 20060501
  Serious: Yes (Life-Threatening, Hospitalization)
  Sender: FDA-Public Use
  Company Number: BE-SANOFI-SYNTHELABO-A01200507413

PATIENT
  Age: 52 Year
  Sex: Female
  Weight: 45 kg

DRUGS (6)
  1. ELOXATIN [Suspect]
     Indication: RECTAL CANCER
     Route: 042
     Dates: start: 20051017, end: 20051017
  2. EMCONCOR [Concomitant]
     Indication: HYPERTENSION
     Dosage: UNK
     Route: 048
  3. ZOFRAN [Concomitant]
  4. LITICUM [Concomitant]
  5. CALCIUM GLUCONATE [Concomitant]
  6. MAGNESIUM [Concomitant]

REACTIONS (1)
  - VENTRICULAR FIBRILLATION [None]
